FAERS Safety Report 5960427-3 (Version None)
Quarter: 2008Q4

REPORT INFORMATION
  Report Type: 
  Country: None (occurrence: None)
  Receive Date: 20081112
  Receipt Date: 20080410
  Transmission Date: 20090506
  Serious: Yes (Hospitalization)
  Sender: FDA-Public Use
  Company Number: US-JNJFOC-20080204118

PATIENT
  Age: 80 Year
  Sex: Male
  Weight: 86.2 kg

DRUGS (18)
  1. MOTRIN [Suspect]
     Indication: INFLAMMATORY PAIN
     Dosage: ORAL
     Route: 048
     Dates: start: 20071212, end: 20071219
  2. AG-013, 736 (ALL OTHER THERAPEUTICS PRODUCTS) UNSPECIFIED [Suspect]
     Indication: COLORECTAL CANCER METASTATIC
     Dosage: 5 MG, 2 IN 1 DAY, ORAL
     Route: 048
     Dates: start: 20071113, end: 20071219
  3. FLUOROURACIL [Suspect]
     Indication: COLORECTAL CANCER METASTATIC
     Dosage: SEE IMAGE
     Route: 040
     Dates: start: 20071113, end: 20071227
  4. FLUOROURACIL [Suspect]
     Indication: COLORECTAL CANCER METASTATIC
     Dosage: SEE IMAGE
     Route: 040
     Dates: start: 20071113, end: 20071227
  5. OXALIPLATIN [Suspect]
     Indication: COLORECTAL CANCER
     Dosage: 85 MG/M2, 1 IN 14 DAY, INTRAVENOUS
     Route: 042
     Dates: start: 20071113, end: 20071127
  6. LEUCOVORIN (FOLINIC ACID) INTRAVENOUS INFUSION [Suspect]
     Indication: COLORECTAL CANCER METASTATIC
     Dosage: 400 MG/M2, 1 IN 14 DAY, INTRAVENOUS
     Route: 042
     Dates: start: 20071113, end: 20071127
  7. TRAMADOL (TRAMADOL HYDROCHLORIDE) UNSPECIFIED [Concomitant]
  8. DIGOXIN [Concomitant]
  9. PRILOSEC [Concomitant]
  10. PROTONIX [Concomitant]
  11. LIPITOR [Concomitant]
  12. ASPIRIN [Concomitant]
  13. MULTIVITAMIN [Suspect]
  14. BETAPACE [Concomitant]
  15. ALPRAZOLAM [Concomitant]
  16. LASIX [Concomitant]
  17. POTASSIUM (POTASSIUM) [Concomitant]
  18. KAYEXALATE (SODIUM POLYSTRENE SULFONATE) [Concomitant]

REACTIONS (1)
  - RENAL FAILURE [None]
